FAERS Safety Report 24748052 (Version 2)
Quarter: 2024Q4

REPORT INFORMATION
  Report Type: Spontaneous
  Country: CN (occurrence: CN)
  Receive Date: 20241218
  Receipt Date: 20241225
  Transmission Date: 20250115
  Serious: Yes (Life-Threatening)
  Sender: GE HEALTHCARE
  Company Number: CN-GE HEALTHCARE-2024CSU014445

PATIENT
  Age: 38 Year
  Sex: Male

DRUGS (1)
  1. OMNIPAQUE [Suspect]
     Active Substance: IOHEXOL
     Indication: Computerised tomogram abdomen
     Dosage: 77 ML, TOTAL
     Route: 042
     Dates: start: 20241210, end: 20241210

REACTIONS (3)
  - Anal incontinence [Recovered/Resolved]
  - Urinary incontinence [Recovered/Resolved]
  - Anaphylactic shock [Recovered/Resolved]

NARRATIVE: CASE EVENT DATE: 20241210
